FAERS Safety Report 7935160-9 (Version None)
Quarter: 2011Q4

REPORT INFORMATION
  Report Type: 
  Country: None (occurrence: None)
  Receive Date: 20111122
  Receipt Date: 20111109
  Transmission Date: 20120403
  Serious: Yes (Hospitalization)
  Sender: FDA-Public Use
  Company Number: PHHY2011FR098851

PATIENT
  Sex: Male

DRUGS (11)
  1. METHOTREXATE [Suspect]
     Indication: BONE MARROW TRANSPLANT
     Dosage: 300 MG
     Route: 042
  2. HYDREA [Concomitant]
     Indication: HYPEREOSINOPHILIC SYNDROME
  3. SOLU-MEDROL [Concomitant]
     Dates: start: 20110925
  4. BUSULFAN [Suspect]
     Indication: BONE MARROW TRANSPLANT
     Route: 042
     Dates: start: 20110911, end: 20110915
  5. CYCLOPHOSPHAMIDE [Suspect]
     Indication: BONE MARROW TRANSPLANT
     Route: 042
     Dates: start: 20110919, end: 20110919
  6. NEORAL [Suspect]
     Indication: BONE MARROW TRANSPLANT
     Route: 042
     Dates: start: 20110910, end: 20111004
  7. MESNA [Concomitant]
     Dates: start: 20110916, end: 20110919
  8. NEORAL [Suspect]
     Route: 042
  9. VANCOMYCIN [Concomitant]
     Dates: start: 20110920, end: 20111004
  10. ORGARAN [Concomitant]
     Indication: THROMBOSIS
  11. ZOVIRAX [Concomitant]
     Dates: start: 20110910

REACTIONS (14)
  - HEPATIC INFECTION [None]
  - ALANINE AMINOTRANSFERASE INCREASED [None]
  - HUMAN HERPESVIRUS 6 INFECTION [None]
  - GENERALISED OEDEMA [None]
  - VENOOCCLUSIVE LIVER DISEASE [None]
  - BLOOD ALKALINE PHOSPHATASE INCREASED [None]
  - WEIGHT INCREASED [None]
  - ACUTE PULMONARY OEDEMA [None]
  - GAMMA-GLUTAMYLTRANSFERASE INCREASED [None]
  - BILIRUBIN CONJUGATED INCREASED [None]
  - ASPARTATE AMINOTRANSFERASE INCREASED [None]
  - BLOOD BILIRUBIN INCREASED [None]
  - CAPILLARY LEAK SYNDROME [None]
  - BLOOD CREATININE INCREASED [None]
